FAERS Safety Report 8673016 (Version 7)
Quarter: 2013Q2

REPORT INFORMATION
  Report Type: Spontaneous
  Country: JP (occurrence: JP)
  Receive Date: 20120719
  Receipt Date: 20130523
  Transmission Date: 20140414
  Serious: Yes (Other)
  Sender: FDA-Public Use
  Company Number: JP-ELI_LILLY_AND_COMPANY-JP201207002075

PATIENT
  Age: 59 Year
  Sex: Female
  Weight: 35 kg

DRUGS (5)
  1. FORTEO [Suspect]
     Indication: OSTEOPOROSIS
     Dosage: UNK, QD
     Route: 058
     Dates: start: 20120703, end: 20121209
  2. FORTEO [Suspect]
     Dosage: UNK
     Route: 058
     Dates: start: 20121215, end: 201302
  3. FORTEO [Suspect]
     Dosage: UNK
     Route: 058
     Dates: start: 201302
  4. EVISTA [Suspect]
     Indication: OSTEOPOROSIS
     Dosage: UNK
     Route: 048
     Dates: start: 2009
  5. EVISTA [Suspect]
     Dosage: UNK
     Dates: start: 201106, end: 201207

REACTIONS (32)
  - Spinal compression fracture [Unknown]
  - Dermatitis contact [Unknown]
  - Injection site erythema [Unknown]
  - Bone pain [Unknown]
  - Eczema [Unknown]
  - Hyponatraemia [Unknown]
  - Haemorrhage subcutaneous [Unknown]
  - Road traffic accident [Recovered/Resolved]
  - Body height decreased [Not Recovered/Not Resolved]
  - Injection site bruising [Not Recovered/Not Resolved]
  - Ligament sprain [Unknown]
  - Local swelling [Unknown]
  - Injection site laceration [Unknown]
  - Needle track marks [Unknown]
  - Limb injury [Unknown]
  - Muscular weakness [Unknown]
  - Rhinorrhoea [Recovered/Resolved]
  - Pyrexia [Recovered/Resolved]
  - Nasopharyngitis [Recovered/Resolved]
  - Lip blister [Unknown]
  - Nasopharyngitis [Unknown]
  - Diarrhoea [Unknown]
  - Urticaria [Unknown]
  - Weight increased [Unknown]
  - Eye pruritus [Unknown]
  - Pyrexia [Not Recovered/Not Resolved]
  - Oropharyngeal discomfort [Unknown]
  - Diarrhoea [Unknown]
  - Malaise [Unknown]
  - Nausea [Recovered/Resolved]
  - Drug ineffective [Unknown]
  - Accidental exposure to product [Recovered/Resolved]
